FAERS Safety Report 8070970-1 (Version None)
Quarter: 2012Q1

REPORT INFORMATION
  Report Type: 
  Country: None (occurrence: None)
  Receive Date: 20120125
  Receipt Date: 20120117
  Transmission Date: 20120608
  Serious: Yes (Hospitalization, Disabling, Other)
  Sender: FDA-Public Use
  Company Number: US-MERCK-1106USA00886

PATIENT
  Age: 53 Year
  Sex: Female
  Weight: 136 kg

DRUGS (9)
  1. FOSAMAX [Suspect]
     Indication: BONE DENSITY DECREASED
     Route: 048
     Dates: start: 20060101, end: 20100101
  2. [THERAPY UNSPECIFIED] [Concomitant]
     Dosage: CHOLESTEROL-LOWERING MEDICATION
     Route: 065
  3. FOSAMAX [Suspect]
     Indication: OSTEOPOROSIS
     Route: 048
     Dates: start: 20060101, end: 20100101
  4. FOSAMAX [Suspect]
     Route: 048
     Dates: start: 20090801, end: 20100501
  5. FOSAMAX [Suspect]
     Route: 048
     Dates: start: 20090216, end: 20110323
  6. [THERAPY UNSPECIFIED] [Concomitant]
     Dosage: TREATMENT OF DIABETES
     Route: 065
  7. ALENDRONATE SODIUM [Suspect]
     Indication: BONE DENSITY DECREASED
     Route: 048
     Dates: start: 20090301, end: 20090501
  8. FOSAMAX [Suspect]
     Route: 048
     Dates: start: 20090216, end: 20110323
  9. FOSAMAX [Suspect]
     Route: 048
     Dates: start: 20060101, end: 20100101

REACTIONS (38)
  - FATIGUE [None]
  - CHEST PAIN [None]
  - ANXIETY [None]
  - OSTEONECROSIS [None]
  - HAEMORRHAGIC DISORDER [None]
  - BRONCHITIS CHRONIC [None]
  - NAUSEA [None]
  - SICK SINUS SYNDROME [None]
  - JOINT SWELLING [None]
  - OSTEOARTHRITIS [None]
  - BACK PAIN [None]
  - OSTEOPOROSIS [None]
  - DEPRESSION [None]
  - DEEP VEIN THROMBOSIS [None]
  - PULMONARY EMBOLISM [None]
  - LOW TURNOVER OSTEOPATHY [None]
  - FRACTURE MALUNION [None]
  - TOOTH DISORDER [None]
  - DENTAL CARIES [None]
  - CONSTIPATION [None]
  - FEMUR FRACTURE [None]
  - MIGRAINE [None]
  - GASTROINTESTINAL DISORDER [None]
  - WEIGHT INCREASED [None]
  - ARTHRALGIA [None]
  - INSOMNIA [None]
  - TRIGGER FINGER [None]
  - ESSENTIAL HYPERTENSION [None]
  - UPPER LIMB FRACTURE [None]
  - MYALGIA [None]
  - OEDEMA [None]
  - MYOSITIS [None]
  - BRADYCARDIA [None]
  - FALL [None]
  - HERNIA [None]
  - SPINAL OSTEOARTHRITIS [None]
  - BRUXISM [None]
  - TACHYARRHYTHMIA [None]
